FAERS Safety Report 8939504 (Version 3)
Quarter: 2013Q2

REPORT INFORMATION
  Report Type: Spontaneous
  Country: US (occurrence: US)
  Receive Date: 20121203
  Receipt Date: 20130513
  Transmission Date: 20140414
  Serious: No
  Sender: FDA-Public Use
  Company Number: US-BIOGENIDEC-2012BI055759

PATIENT
  Age: 43 Year
  Sex: Female

DRUGS (1)
  1. TYSABRI [Suspect]
     Indication: MULTIPLE SCLEROSIS
     Route: 042
     Dates: start: 20120713

REACTIONS (10)
  - Memory impairment [Unknown]
  - Anxiety [Unknown]
  - Cognitive disorder [Unknown]
  - Central nervous system lesion [Unknown]
  - Insomnia [Unknown]
  - Depression [Unknown]
  - Multiple sclerosis relapse [Recovered/Resolved]
  - Pruritus [Recovered/Resolved]
  - Fatigue [Unknown]
  - Hypersensitivity [Unknown]
